FAERS Safety Report 15676550 (Version 2)
Quarter: 2018Q4

REPORT INFORMATION
  Report Type: Spontaneous
  Country: US (occurrence: US)
  Receive Date: 20181130
  Receipt Date: 20181203
  Transmission Date: 20190205
  Serious: Yes (Hospitalization, Other)
  Sender: FDA-Public Use
  Company Number: US-SAKK-2018SA322800AA

PATIENT
  Age: 60 Year
  Sex: Female
  Weight: 62 kg

DRUGS (17)
  1. CARBOPLATIN. [Suspect]
     Active Substance: CARBOPLATIN
     Indication: NEOPLASM
     Dosage: UNK
     Route: 042
     Dates: start: 20160209
  2. SYNTHROID [Concomitant]
     Active Substance: LEVOTHYROXINE SODIUM
     Indication: HYPOTHYROIDISM
     Dosage: 137 UG, QD
     Route: 048
     Dates: start: 2005
  3. FOSAPREPITANT [Concomitant]
     Active Substance: FOSAPREPITANT
     Indication: PREMEDICATION
  4. PALONOSETRON. [Concomitant]
     Active Substance: PALONOSETRON HYDROCHLORIDE
     Indication: PREMEDICATION
  5. NYSTATIN. [Concomitant]
     Active Substance: NYSTATIN
     Indication: ERYTHEMA
     Dosage: UNK
     Route: 061
     Dates: start: 20160215, end: 20160321
  6. PACLITAXEL. [Suspect]
     Active Substance: PACLITAXEL
     Indication: NEOPLASM
     Dosage: UNK
     Route: 042
     Dates: start: 20160202, end: 20160202
  7. TRAMADOL. [Concomitant]
     Active Substance: TRAMADOL
     Indication: PROCEDURAL PAIN
     Dosage: UNK
     Route: 048
     Dates: start: 20160114
  8. TRAMADOL. [Concomitant]
     Active Substance: TRAMADOL
     Indication: ARTHRALGIA
  9. DEXAMETHASONE. [Concomitant]
     Active Substance: DEXAMETHASONE
     Indication: CHEMOTHERAPY
     Dosage: UNK
     Route: 042
     Dates: start: 20160202, end: 20160524
  10. EMLA [LIDOCAINE;PRILOCAINE] [Concomitant]
     Indication: PROPHYLAXIS
     Dosage: UNK UNK, PRN
     Route: 061
     Dates: start: 20160202, end: 20160524
  11. FOSAPREPITANT [Concomitant]
     Active Substance: FOSAPREPITANT
     Indication: CHEMOTHERAPY
     Dosage: UNK
     Route: 042
     Dates: start: 20160202, end: 20160524
  12. FAMOTIDINE. [Concomitant]
     Active Substance: FAMOTIDINE
     Indication: PREMEDICATION
  13. DOCETAXEL. [Suspect]
     Active Substance: DOCETAXEL
     Indication: NEOPLASM
     Dosage: UNK
     Route: 042
     Dates: start: 20160209
  14. VELIPARIB [Suspect]
     Active Substance: VELIPARIB
     Indication: NEOPLASM
     Dosage: UNK
     Route: 048
     Dates: start: 20160202
  15. PALONOSETRON. [Concomitant]
     Active Substance: PALONOSETRON HYDROCHLORIDE
     Indication: CHEMOTHERAPY
     Dosage: UNK
     Route: 042
     Dates: start: 20160202, end: 20160524
  16. FAMOTIDINE. [Concomitant]
     Active Substance: FAMOTIDINE
     Indication: CHEMOTHERAPY
     Dosage: UNK
     Route: 042
     Dates: start: 20160202, end: 20160524
  17. DEXAMETHASONE. [Concomitant]
     Active Substance: DEXAMETHASONE
     Indication: PREMEDICATION

REACTIONS (7)
  - Neutropenia [Recovered/Resolved]
  - Pelvic abscess [Recovered/Resolved]
  - Monocyte count increased [Unknown]
  - White blood cell count increased [Unknown]
  - Blood potassium decreased [Unknown]
  - Blood creatinine increased [Unknown]
  - Blood sodium increased [Unknown]

NARRATIVE: CASE EVENT DATE: 20160216
